FAERS Safety Report 21444411 (Version 1)
Quarter: 2022Q4

REPORT INFORMATION
  Report Type: Report from Study
  Country: US (occurrence: US)
  Receive Date: 20221012
  Receipt Date: 20221012
  Transmission Date: 20230112
  Serious: No
  Sender: FDA-Public Use
  Company Number: US-ABBVIE-4151142

PATIENT
  Sex: Male

DRUGS (5)
  1. SKYRIZI [Suspect]
     Active Substance: RISANKIZUMAB-RZAA
     Indication: Psoriasis
     Route: 058
  2. METHOTREXATE [Concomitant]
     Active Substance: METHOTREXATE
     Indication: Product used for unknown indication
  3. Pfizer/BioNTech [Concomitant]
     Indication: COVID-19 immunisation
     Dosage: FIRST DOSE?ONCE
     Route: 030
  4. Pfizer/BioNTech [Concomitant]
     Indication: COVID-19 immunisation
     Dosage: SECOND DOSE?ONCE
     Route: 030
  5. Pfizer/BioNTech [Concomitant]
     Indication: COVID-19 immunisation
     Dosage: BOOSTER DOSE?ONCE
     Route: 030

REACTIONS (2)
  - Dry skin [Not Recovered/Not Resolved]
  - Pruritus [Unknown]
